FAERS Safety Report 17171397 (Version 2)
Quarter: 2021Q1

REPORT INFORMATION
  Report Type: Spontaneous
  Country: JP (occurrence: JP)
  Receive Date: 20191218
  Receipt Date: 20210202
  Transmission Date: 20210419
  Serious: Yes (Disabling, Other)
  Sender: FDA-Public Use
  Company Number: JP-009507513-1911JPN000440J

PATIENT
  Age: 92 Year
  Sex: Male
  Weight: 45 kg

DRUGS (3)
  1. BETANIS [Concomitant]
     Active Substance: MIRABEGRON
     Dosage: UNK
     Route: 065
  2. AVOLVE [Concomitant]
     Active Substance: DUTASTERIDE
     Dosage: UNK
     Route: 065
  3. KEYTRUDA [Suspect]
     Active Substance: PEMBROLIZUMAB
     Indication: BLADDER CANCER
     Dosage: 200 MILLIGRAM,ONCE EVERY THREE TO FOUR WEEKS
     Route: 041
     Dates: start: 20190722, end: 20191028

REACTIONS (3)
  - Vogt-Koyanagi-Harada disease [Recovered/Resolved]
  - Off label use [Unknown]
  - Immune-mediated uveitis [Recovered/Resolved]

NARRATIVE: CASE EVENT DATE: 2019
